FAERS Safety Report 9422285 (Version 1)
Quarter: 2013Q3

REPORT INFORMATION
  Report Type: Spontaneous
  Country: IE (occurrence: IE)
  Receive Date: 20130726
  Receipt Date: 20130726
  Transmission Date: 20140515
  Serious: Yes (Other)
  Sender: FDA-Public Use
  Company Number: IE-MPIJNJ-2013-05419

PATIENT
  Sex: 0

DRUGS (12)
  1. VELCADE [Suspect]
     Indication: PLASMA CELL MYELOMA
     Dosage: 1.3 MG/M2, CYCLIC
     Route: 042
     Dates: start: 20100805
  2. THALIDOMIDE [Suspect]
     Indication: PLASMA CELL MYELOMA
     Route: 065
  3. VALTREX [Concomitant]
  4. LOSEC                              /00661201/ [Concomitant]
  5. CARDICOR [Concomitant]
  6. FRUMIL [Concomitant]
  7. SEPARIN T [Concomitant]
  8. ELTROXIN [Concomitant]
  9. PARACETAMOL [Concomitant]
  10. ASPIRIN [Concomitant]
  11. LIPITOR [Concomitant]
  12. INNOHEP                            /00889602/ [Concomitant]

REACTIONS (4)
  - Oedema peripheral [Not Recovered/Not Resolved]
  - Neuropathy peripheral [Unknown]
  - Eye pain [Unknown]
  - Dizziness [Unknown]
